FAERS Safety Report 5660476-9 (Version None)
Quarter: 2008Q1

REPORT INFORMATION
  Report Type: 
  Country: None (occurrence: None)
  Receive Date: 20080214
  Receipt Date: 20080104
  Transmission Date: 20080703
  Serious: No
  Sender: FDA-Public Use
  Company Number: WAES 0801USA00677

PATIENT

DRUGS (2)
  1. ISENTRESS [Suspect]
  2. TMC-125 [Concomitant]

REACTIONS (1)
  - POLYCYTHAEMIA [None]
